FAERS Safety Report 7548260-2 (Version None)
Quarter: 2011Q2

REPORT INFORMATION
  Report Type: 
  Country: None (occurrence: None)
  Receive Date: 20110615
  Receipt Date: 20110609
  Transmission Date: 20111010
  Serious: No
  Sender: FDA-Public Use
  Company Number: US-PFIZER INC-2011127007

PATIENT
  Age: 91 Year
  Sex: Male
  Weight: 77 kg

DRUGS (1)
  1. PROTONIX [Suspect]
     Indication: GASTROINTESTINAL HAEMORRHAGE
     Dosage: 4 MG, IN AN HOUR
     Route: 042
     Dates: start: 20110608, end: 20110609

REACTIONS (2)
  - OEDEMA PERIPHERAL [None]
  - EXTRAVASATION [None]
